FAERS Safety Report 21881595 (Version 1)
Quarter: 2023Q1

REPORT INFORMATION
  Report Type: Spontaneous
  Country: FR (occurrence: FR)
  Receive Date: 20230119
  Receipt Date: 20230119
  Transmission Date: 20230418
  Serious: Yes (Hospitalization, Other)
  Sender: FDA-Public Use
  Company Number: None

PATIENT
  Age: 69 Year
  Sex: Male

DRUGS (2)
  1. ELIQUIS [Suspect]
     Active Substance: APIXABAN
     Indication: Cerebrovascular accident prophylaxis
     Route: 048
     Dates: start: 20221115, end: 20221119
  2. XARELTO [Suspect]
     Active Substance: RIVAROXABAN
     Indication: Thrombosis prophylaxis
     Route: 048
     Dates: end: 20221119

REACTIONS (7)
  - Malaise [Recovered/Resolved]
  - Haematuria [Recovered/Resolved]
  - Thrombocytopenia [Recovered/Resolved]
  - Gingival bleeding [Recovered/Resolved]
  - Haemoptysis [Recovered/Resolved]
  - Rectal haemorrhage [Recovered/Resolved]
  - Contraindicated product administered [Recovered/Resolved]

NARRATIVE: CASE EVENT DATE: 20221115
